FAERS Safety Report 9797204 (Version 1)
Quarter: 2014Q1

REPORT INFORMATION
  Report Type: Spontaneous
  Country: GB (occurrence: GB)
  Receive Date: 20140106
  Receipt Date: 20140106
  Transmission Date: 20141002
  Serious: Yes (Other)
  Sender: FDA-Public Use
  Company Number: GB-ROCHE-1328469

PATIENT
  Age: 38 Year
  Sex: Male
  Weight: 74.6 kg

DRUGS (1)
  1. CYMEVENE [Suspect]
     Indication: CYTOMEGALOVIRUS INFECTION
     Route: 042
     Dates: start: 20131228

REACTIONS (1)
  - Extravasation [Recovering/Resolving]
